FAERS Safety Report 8545267-3 (Version None)
Quarter: 2012Q3

REPORT INFORMATION
  Report Type: 
  Country: None (occurrence: None)
  Receive Date: 20120727
  Receipt Date: 20120717
  Transmission Date: 20120928
  Serious: Yes (Hospitalization)
  Sender: FDA-Public Use
  Company Number: FR-BAXTER-2012BAX011622

PATIENT
  Sex: Male

DRUGS (13)
  1. PRIMPERAN TAB [Suspect]
     Indication: EWING'S SARCOMA
     Dosage: 2 VIALS
     Route: 042
     Dates: start: 20120625, end: 20120627
  2. VINCRISTINE [Suspect]
     Indication: EWING'S SARCOMA
     Route: 065
     Dates: start: 20120625
  3. POLYETHYLENE GLYCOL [Concomitant]
     Route: 065
  4. OXYCODONE HCL [Concomitant]
     Route: 065
  5. DOXORUBICIN HYDROCHLORIDE [Suspect]
     Indication: EWING'S SARCOMA
     Route: 065
     Dates: start: 20120625
  6. PAROXETINE HCL [Concomitant]
     Route: 065
  7. ACETAMINOPHEN [Concomitant]
     Route: 065
  8. LOVENOX [Concomitant]
     Route: 065
  9. MESNA [Suspect]
     Indication: EWING'S SARCOMA
     Route: 042
     Dates: start: 20120625, end: 20120627
  10. IFOSFAMIDE [Suspect]
     Indication: EWING'S SARCOMA
     Route: 042
     Dates: start: 20120625, end: 20120627
  11. ESOMEPRAZOLE [Concomitant]
     Route: 065
  12. ETOPOSIDE [Suspect]
     Indication: EWING'S SARCOMA
     Route: 065
     Dates: start: 20120625
  13. XANAX [Concomitant]
     Route: 065

REACTIONS (2)
  - ANGIOEDEMA [None]
  - DYSTONIA [None]
